FAERS Safety Report 21757325 (Version 1)
Quarter: 2022Q4

REPORT INFORMATION
  Report Type: Spontaneous
  Country: FR (occurrence: FR)
  Receive Date: 20221220
  Receipt Date: 20221220
  Transmission Date: 20230113
  Serious: Yes (Death, Other)
  Sender: FDA-Public Use
  Company Number: FR-STRIDES ARCOLAB LIMITED-2022SP016987

PATIENT

DRUGS (24)
  1. METHOTREXATE [Suspect]
     Active Substance: METHOTREXATE
     Indication: Primary mediastinal large B-cell lymphoma
     Dosage: UNK; RECEIVED ON DAY 1
     Route: 037
  2. METHOTREXATE [Suspect]
     Active Substance: METHOTREXATE
     Dosage: 3 GRAM PER SQUARE METRE ON DAY 1; PART OF COPADM REGIMEN
     Route: 065
  3. METHOTREXATE [Suspect]
     Active Substance: METHOTREXATE
     Dosage: UNK; RECEIVED ON DAY 2
     Route: 037
  4. METHOTREXATE [Suspect]
     Active Substance: METHOTREXATE
     Dosage: 3 GRAM PER SQUARE METRE ON DAY 1; PART OF COPADM REGIMEN
     Route: 065
  5. PREDNISOLONE [Suspect]
     Active Substance: PREDNISOLONE
     Indication: Primary mediastinal large B-cell lymphoma
     Dosage: 60 MILLIGRAM/SQ. METER; RECEIVED ON DAY 1
     Route: 065
  6. PREDNISOLONE [Suspect]
     Active Substance: PREDNISOLONE
     Dosage: 60 MILLIGRAM/SQ. METER; RECEIVED ON DAY 1 TO 5; PART OF COPADM REGIMEN
     Route: 065
  7. PREDNISOLONE [Suspect]
     Active Substance: PREDNISOLONE
     Dosage: UNK, 2 COURSES OF R-EPOCH REGIMEN
     Route: 065
  8. ETOPOSIDE [Suspect]
     Active Substance: ETOPOSIDE
     Indication: Primary mediastinal large B-cell lymphoma
     Dosage: UNK; 2 COURSES OF RCYVE GROUP
     Route: 065
  9. ETOPOSIDE [Suspect]
     Active Substance: ETOPOSIDE
     Dosage: UNK; PART OF R-ICE REGIMEN; RECEIVED TWO COURSES
     Route: 065
  10. ETOPOSIDE [Suspect]
     Active Substance: ETOPOSIDE
     Dosage: UNK; AND 2 COURSES OF R-EPOCH REGIMEN
     Route: 065
  11. CYCLOPHOSPHAMIDE [Suspect]
     Active Substance: CYCLOPHOSPHAMIDE
     Indication: Primary mediastinal large B-cell lymphoma
     Dosage: 300 MILLIGRAM/SQ. METER; RECEIVED ON DAY 1
     Route: 065
  12. CYCLOPHOSPHAMIDE [Suspect]
     Active Substance: CYCLOPHOSPHAMIDE
     Dosage: 250 MILLIGRAM/SQ. METER, BID;RECEIVED ON DAY 2 TO 4; PART OF R-EPOCH REGIMEN
     Route: 065
  13. CYCLOPHOSPHAMIDE [Suspect]
     Active Substance: CYCLOPHOSPHAMIDE
     Dosage: UNK, 2 COURSES OF R-EPOCH REGIMEN
     Route: 065
  14. VINCRISTINE [Suspect]
     Active Substance: VINCRISTINE
     Indication: Primary mediastinal large B-cell lymphoma
     Dosage: 2 MILLIGRAM/SQ. METER; RECEIVED ON DAY 1; PART OF COPADM REGIMEN
     Route: 065
  15. VINCRISTINE [Suspect]
     Active Substance: VINCRISTINE
     Dosage: UNK, 2 COURSES OF R-EPOCH REGIMEN
     Route: 065
  16. ADRIAMYCIN [Suspect]
     Active Substance: DOXORUBICIN HYDROCHLORIDE
     Indication: Primary mediastinal large B-cell lymphoma
     Dosage: 60 MILLIGRAM/SQ. METER; RECEIVED ON DAY 2 ; PART OF R-EPOCH REGIMEN
     Route: 065
  17. ADRIAMYCIN [Suspect]
     Active Substance: DOXORUBICIN HYDROCHLORIDE
     Dosage: UNK, 2 COURSES OF R-EPOCH REGIMEN
     Route: 065
  18. CYTARABINE [Suspect]
     Active Substance: CYTARABINE
     Indication: Primary mediastinal large B-cell lymphoma
     Dosage: 100 MILLIGRAM/SQ. METER; RECEIVED ON DAY 7;PART OF R-DHAP REGIMEN
     Route: 065
  19. CYTARABINE [Suspect]
     Active Substance: CYTARABINE
     Dosage: UNK; CYTARABINE ON DAY 7
     Route: 065
  20. CYTARABINE [Suspect]
     Active Substance: CYTARABINE
     Dosage: UNK; RECEIVED 2 COURSES OF RCYVE GROUP
     Route: 065
  21. IFOSFAMIDE [Suspect]
     Active Substance: IFOSFAMIDE
     Indication: Primary mediastinal large B-cell lymphoma
     Dosage: UNK; PART OF R-ICE REGIMEN; RECEIVED TWO COURSES
     Route: 065
  22. CARBOPLATIN [Suspect]
     Active Substance: CARBOPLATIN
     Indication: Primary mediastinal large B-cell lymphoma
     Dosage: UNK; PART OF R-ICE REGIMEN; RECEIVED TWO COURSES
     Route: 065
  23. RITUXIMAB [Suspect]
     Active Substance: RITUXIMAB
     Indication: Primary mediastinal large B-cell lymphoma
     Dosage: 375 MG/M2, 2 COURSES OF RCYVE GROUP
     Route: 042
  24. RITUXIMAB [Suspect]
     Active Substance: RITUXIMAB
     Dosage: UNK; PART OF R-ICE REGIMEN AND R-EPOCH REGIMEN; RECEIVED TWO COURSES
     Route: 065

REACTIONS (2)
  - Drug ineffective [Fatal]
  - Off label use [Unknown]
